FAERS Safety Report 9006596 (Version 1)
Quarter: 2012Q4

REPORT INFORMATION
  Report Type: Spontaneous
  Country: GB (occurrence: None)
  Receive Date: 20121227
  Receipt Date: 20121227
  Transmission Date: 20130627
  Serious: Yes (Hospitalization, Other)
  Sender: FDA-Public Use
  Company Number: 2012-22545

PATIENT
  Age: 8 Year
  Sex: Male

DRUGS (3)
  1. IBUPROFEN (UNKNOWN) (IBUPROFEN) UNK, UNKUNK [Suspect]
     Indication: VIREMIA
     Dosage: 200 mg, tid Dosage Form: Unspecified, Daily Dose Qty: 600 mg, Oral
     Route: 048
  2. CEFTRIAXONE (CEFTRIAXONE) [Concomitant]
  3. PARACETAMOL (PARACETAMOL) [Concomitant]

REACTIONS (18)
  - Renal papillary necrosis [None]
  - Ureteric obstruction [None]
  - Abdominal pain [None]
  - Anuria [None]
  - Back pain [None]
  - Somnolence [None]
  - Pyrexia [None]
  - Rash macular [None]
  - Oedema peripheral [None]
  - Peritonitis [None]
  - Renal disorder [None]
  - Blood creatinine increased [None]
  - Musculoskeletal stiffness [None]
  - Malaise [None]
  - Ureteral disorder [None]
  - Urethral haemorrhage [None]
  - Urine output decreased [None]
  - Vomiting [None]
